FAERS Safety Report 5509744-1 (Version None)
Quarter: 2007Q4

REPORT INFORMATION
  Report Type: 
  Country: None (occurrence: None)
  Receive Date: 20071107
  Receipt Date: 20071107
  Transmission Date: 20080405
  Serious: Yes (Other)
  Sender: FDA-Public Use
  Company Number: None

PATIENT
  Sex: Male

DRUGS (3)
  1. NEUPOGEN [Suspect]
     Indication: BRONCHIAL CARCINOMA
     Dosage: INJECT 480MCG DAILYFOR4DAYSQ2WK SQ
     Route: 058
     Dates: start: 20070928, end: 20070930
  2. NEUPOGEN [Suspect]
     Indication: LUNG NEOPLASM MALIGNANT
     Dosage: INJECT 480MCG DAILYFOR4DAYSQ2WK SQ
     Route: 058
     Dates: start: 20070928, end: 20070930
  3. NEUPOGEN [Suspect]
     Indication: TRACHEAL CANCER
     Dosage: INJECT 480MCG DAILYFOR4DAYSQ2WK SQ
     Route: 058
     Dates: start: 20070928, end: 20070930

REACTIONS (2)
  - BACK PAIN [None]
  - BONE PAIN [None]
